FAERS Safety Report 4651207-X (Version None)
Quarter: 2005Q2

REPORT INFORMATION
  Report Type: 
  Country: None (occurrence: None)
  Receive Date: 20050331
  Receipt Date: 20050128
  Transmission Date: 20051028
  Serious: No
  Sender: FDA-Public Use
  Company Number: 05P-163-0288515-00

PATIENT
  Age: 84 Year
  Sex: Female
  Weight: 73.4827 kg

DRUGS (6)
  1. HUMIRA [Suspect]
     Indication: RHEUMATOID ARTHRITIS
     Dosage: 40 MG, 1 IN 2 WK, SUBCUTANEOUS;  40 MG, 1 IN 2 WK, SUBCUTANEOUS
     Route: 058
     Dates: start: 20031201, end: 20041226
  2. HUMIRA [Suspect]
     Indication: RHEUMATOID ARTHRITIS
     Dosage: 40 MG, 1 IN 2 WK, SUBCUTANEOUS;  40 MG, 1 IN 2 WK, SUBCUTANEOUS
     Route: 058
     Dates: start: 20050128
  3. METHOTREXATE SODIUM [Concomitant]
  4. THYROID PILL [Concomitant]
  5. PREDNISONE TAB [Concomitant]
  6. FOLIC ACID [Concomitant]

REACTIONS (3)
  - BACK PAIN [None]
  - INFLUENZA LIKE ILLNESS [None]
  - LARYNGITIS [None]
